FAERS Safety Report 13321682 (Version 1)
Quarter: 2017Q1

REPORT INFORMATION
  Report Type: Spontaneous
  Country: US (occurrence: US)
  Receive Date: 20170309
  Receipt Date: 20170309
  Transmission Date: 20170428
  Serious: Yes (Hospitalization, Other)
  Sender: FDA-Public Use
  Company Number: US-WEST-WARD PHARMACEUTICALS CORP.-US-H14001-17-00580

PATIENT
  Age: 77 Year
  Sex: Male

DRUGS (2)
  1. HERBAL SUPPLEMENTS [Suspect]
     Active Substance: HERBALS
     Indication: PRODUCT USED FOR UNKNOWN INDICATION
     Route: 065
  2. AMIODARONE [Suspect]
     Active Substance: AMIODARONE
     Indication: ATRIAL FIBRILLATION
     Route: 065

REACTIONS (4)
  - Agitation [Recovering/Resolving]
  - Mixed liver injury [Recovering/Resolving]
  - Drug-induced liver injury [Recovering/Resolving]
  - Insomnia [Recovering/Resolving]
